FAERS Safety Report 20810088 (Version 1)
Quarter: 2022Q2

REPORT INFORMATION
  Report Type: Spontaneous
  Country: US (occurrence: US)
  Receive Date: 20220510
  Receipt Date: 20220510
  Transmission Date: 20220721
  Serious: No
  Sender: FDA-Public Use
  Company Number: US-OYSTER POINT PHARMA, INC.-2022OYS00265

PATIENT
  Age: 77 Year
  Sex: Female
  Weight: 83.9 kg

DRUGS (4)
  1. TYRVAYA [Suspect]
     Active Substance: VARENICLINE TARTRATE
     Indication: Dry eye
     Dosage: 0.03 MG (1 SPRAY), ONCE
     Route: 061
     Dates: start: 20220309, end: 20220309
  2. ALPRAZOLAM [Concomitant]
     Active Substance: ALPRAZOLAM
  3. DILTIAZEM [Concomitant]
     Active Substance: DILTIAZEM
  4. OLMESARTAN [Concomitant]
     Active Substance: OLMESARTAN

REACTIONS (5)
  - Dyspnoea [Recovered/Resolved]
  - Muscle tightness [Recovered/Resolved]
  - Headache [Recovered/Resolved]
  - Incorrect route of product administration [Recovered/Resolved]
  - Sneezing [Recovered/Resolved]

NARRATIVE: CASE EVENT DATE: 20220309
